FAERS Safety Report 4493175-X (Version None)
Quarter: 2004Q4

REPORT INFORMATION
  Report Type: 
  Country: None (occurrence: None)
  Receive Date: 20041029
  Receipt Date: 20041022
  Transmission Date: 20050328
  Serious: Yes (Other)
  Sender: FDA-Public Use
  Company Number: 2004240722US

PATIENT
  Age: 32 Year
  Sex: Female

DRUGS (4)
  1. XANAX [Suspect]
     Dosage: 3 MG, QD,
  2. DEPAKOTE [Suspect]
     Indication: BIPOLAR DISORDER
     Dosage: 1500 MG, QD, ORAL
     Route: 048
  3. LORTAB [Suspect]
     Dosage: 5
  4. LEVOTHYROXINE SODIUM [Concomitant]

REACTIONS (2)
  - ABORTION SPONTANEOUS [None]
  - DRUG EXPOSURE DURING PREGNANCY [None]
